FAERS Safety Report 15112430 (Version 2)
Quarter: 2018Q3

REPORT INFORMATION
  Report Type: Spontaneous
  Country: FR (occurrence: FR)
  Receive Date: 20180705
  Receipt Date: 20180724
  Transmission Date: 20181010
  Serious: Yes (Death, Other)
  Sender: FDA-Public Use
  Company Number: FR-BAYER-2018-122405

PATIENT
  Age: 74 Year
  Sex: Female

DRUGS (5)
  1. TIPIRACIL [Concomitant]
     Active Substance: TIPIRACIL
     Dosage: UNK
     Dates: start: 201803, end: 201804
  2. STIVARGA [Suspect]
     Active Substance: REGORAFENIB
     Indication: ADENOCARCINOMA OF COLON
     Dosage: 160 MG, QD
     Dates: start: 201708, end: 201802
  3. STIVARGA [Suspect]
     Active Substance: REGORAFENIB
     Indication: METASTASIS
  4. TRIFLURIDINE. [Concomitant]
     Active Substance: TRIFLURIDINE
     Dosage: UNK
     Dates: start: 201803, end: 201804
  5. LEVOTHYROX [Concomitant]
     Active Substance: LEVOTHYROXINE
     Indication: THYROID DISORDER
     Dosage: UNK

REACTIONS (6)
  - Asthenia [Not Recovered/Not Resolved]
  - Mucosal inflammation [None]
  - Adenocarcinoma of colon [None]
  - Gastrointestinal haemorrhage [Fatal]
  - General physical health deterioration [None]
  - Decreased appetite [None]

NARRATIVE: CASE EVENT DATE: 201801
